FAERS Safety Report 7659683-5 (Version None)
Quarter: 2011Q3

REPORT INFORMATION
  Report Type: 
  Country: None (occurrence: None)
  Receive Date: 20110805
  Receipt Date: 20110803
  Transmission Date: 20111222
  Serious: Yes (Hospitalization)
  Sender: FDA-Public Use
  Company Number: ES-PFIZER INC-2011177007

PATIENT
  Age: 85 Year
  Sex: Female
  Weight: 70 kg

DRUGS (8)
  1. DRONEDARONE HCL [Suspect]
     Indication: ATRIAL FIBRILLATION
     Dosage: 400 MG, UNK
     Route: 048
     Dates: start: 20110310, end: 20110324
  2. SINTROM [Concomitant]
     Dosage: UNK
     Route: 048
  3. FUROSEMIDE [Concomitant]
     Dosage: 40 MG, 1X/DAY
     Route: 048
  4. ATORVASTATIN CALCIUM [Suspect]
     Indication: HYPERCHOLESTEROLAEMIA
     Dosage: 10 MG, 1X/DAY
     Route: 048
     Dates: start: 20080101, end: 20110324
  5. INSPRA [Suspect]
     Indication: CARDIAC FAILURE CONGESTIVE
     Dosage: 50 MG, UNK
     Route: 048
     Dates: start: 20110324, end: 20110324
  6. EMCONCOR COR [Concomitant]
     Dosage: 2.5 MG, 1X/DAY
     Route: 048
  7. OMEPRAZOLE [Concomitant]
     Dosage: 20 MG, 1X/DAY
     Route: 048
  8. METHYLPREDNISOLONE [Concomitant]
     Dosage: 2 MG 4X/WEEK
     Route: 048

REACTIONS (4)
  - RENAL FAILURE ACUTE [None]
  - HEPATIC NECROSIS [None]
  - METABOLIC ACIDOSIS [None]
  - DIABETES MELLITUS [None]
